FAERS Safety Report 4519685-4 (Version None)
Quarter: 2004Q4

REPORT INFORMATION
  Report Type: 
  Country: None (occurrence: None)
  Receive Date: 20041206
  Receipt Date: 20041101
  Transmission Date: 20050328
  Serious: Yes (Hospitalization, Other)
  Sender: FDA-Public Use
  Company Number: PHBS2004JP14747

PATIENT
  Age: 54 Year
  Sex: Female

DRUGS (6)
  1. AREDIA [Suspect]
     Indication: METASTASES TO BONE
     Dosage: 45 MG
     Route: 042
     Dates: end: 20040809
  2. AREDIA [Suspect]
     Dosage: 90 MG
     Route: 042
     Dates: start: 20040913, end: 20040913
  3. AREDIA [Suspect]
     Dosage: 90 MG
     Route: 042
     Dates: start: 20041004, end: 20041004
  4. AROMASIN [Concomitant]
     Route: 048
     Dates: start: 20040810, end: 20041014
  5. ARIMIDEX [Concomitant]
     Route: 065
  6. LOXOPROFEN SODIUM [Concomitant]
     Route: 065

REACTIONS (5)
  - ALANINE AMINOTRANSFERASE INCREASED [None]
  - ASPARTATE AMINOTRANSFERASE INCREASED [None]
  - BLOOD BILIRUBIN INCREASED [None]
  - CARCINOEMBRYONIC ANTIGEN INCREASED [None]
  - LIVER DISORDER [None]
